FAERS Safety Report 4816262-2 (Version None)
Quarter: 2005Q4

REPORT INFORMATION
  Report Type: 
  Country: None (occurrence: None)
  Receive Date: 20051028
  Receipt Date: 20051019
  Transmission Date: 20060501
  Serious: Yes (Hospitalization)
  Sender: FDA-Public Use
  Company Number: 2005RR-00956

PATIENT
  Age: 77 Year
  Sex: Female

DRUGS (3)
  1. ASPIRIN [Suspect]
     Indication: ANGINA PECTORIS
     Dosage: 75 MG, QD, ORAL
     Route: 048
     Dates: start: 20050901, end: 20050928
  2. SIMVASTATIN [Concomitant]
  3. HYPROMELLOSE [Concomitant]

REACTIONS (1)
  - HAEMATEMESIS [None]
